FAERS Safety Report 9219571 (Version 1)
Quarter: 2013Q2

REPORT INFORMATION
  Report Type: Spontaneous
  Country: US (occurrence: None)
  Receive Date: 20130405
  Receipt Date: 20130405
  Transmission Date: 20140414
  Serious: Yes (Other)
  Sender: FDA-Public Use
  Company Number: UCM201303-000020

PATIENT
  Age: 70 Year
  Sex: Female

DRUGS (2)
  1. BISOPROLOL FUMARATE [Suspect]
     Indication: BLOOD PRESSURE
     Dosage: HALF TABLET OF 5 MG DAILY
     Dates: start: 20130301, end: 201303
  2. VIVELLE DOT PATCH [Concomitant]

REACTIONS (3)
  - Blood pressure increased [None]
  - Product substitution issue [None]
  - Product physical issue [None]
